FAERS Safety Report 9758663 (Version 1)
Quarter: 2013Q4

REPORT INFORMATION
  Report Type: Spontaneous
  Country: US (occurrence: None)
  Receive Date: 20131216
  Receipt Date: 20131216
  Transmission Date: 20140711
  Serious: Yes (Other)
  Sender: FDA-Public Use
  Company Number: FK201203322(0)

PATIENT
  Sex: Female

DRUGS (1)
  1. SENSORCAINE-MPF WITH EPINEPHRINE [Suspect]
     Indication: EPIDURAL ANAESTHESIA
     Dosage: UNKNOWN, UNKNOWN

REACTIONS (1)
  - Drug effect decreased [None]
